FAERS Safety Report 5304276-8 (Version None)
Quarter: 2007Q2

REPORT INFORMATION
  Report Type: 
  Country: None (occurrence: None)
  Receive Date: 20070423
  Receipt Date: 20070411
  Transmission Date: 20071010
  Serious: Yes (Hospitalization)
  Sender: FDA-Public Use
  Company Number: PHEH2007US05029

PATIENT
  Age: 50 Year
  Sex: Female
  Weight: 63.492 kg

DRUGS (6)
  1. ZELNORM [Suspect]
     Indication: IRRITABLE BOWEL SYNDROME
     Dosage: 6 MG, BID
     Route: 048
     Dates: start: 20050101, end: 20050201
  2. ZELNORM [Suspect]
     Dosage: 2 MG, BID
     Route: 048
     Dates: start: 20050201, end: 20070331
  3. COUMADIN [Concomitant]
  4. ARIMIDEX [Concomitant]
  5. ASPIRIN [Concomitant]
  6. NEXIUM [Concomitant]

REACTIONS (5)
  - ARRHYTHMIA [None]
  - CORONARY ARTERY BYPASS [None]
  - MYOCARDIAL INFARCTION [None]
  - STENT PLACEMENT [None]
  - VENTRICULAR TACHYCARDIA [None]
